FAERS Safety Report 8326850-7 (Version None)
Quarter: 2012Q2

REPORT INFORMATION
  Report Type: 
  Country: None (occurrence: None)
  Receive Date: 20120501
  Receipt Date: 20120418
  Transmission Date: 20120825
  Serious: Yes (Congenital Anomaly)
  Sender: FDA-Public Use
  Company Number: DE-MYLANLABS-2012S1007981

PATIENT
  Age: 0 Year
  Sex: Female
  Weight: 3.43 kg

DRUGS (1)
  1. LAMOTRIGINE [Suspect]
     Indication: EPILEPSY
     Dosage: 200 [MG/D ]/ GW 0-36.3 100 MG/D GW 36.4-38.3 200 MG/D
     Route: 064
     Dates: start: 20090813, end: 20100509

REACTIONS (3)
  - ATRIAL SEPTAL DEFECT [None]
  - MATERNAL EXPOSURE DURING PREGNANCY [None]
  - BICUSPID AORTIC VALVE [None]
